FAERS Safety Report 8018373-X (Version None)
Quarter: 2012Q1

REPORT INFORMATION
  Report Type: 
  Country: None (occurrence: None)
  Receive Date: 20120103
  Receipt Date: 20111221
  Transmission Date: 20120608
  Serious: Yes (Disabling, Other)
  Sender: FDA-Public Use
  Company Number: LB-SANOFI-AVENTIS-2011SA084771

PATIENT
  Age: 65 Year
  Sex: Male

DRUGS (5)
  1. TAMSULOSIN HYDROCHLORIDE [Concomitant]
     Indication: BENIGN PROSTATIC HYPERPLASIA
  2. LANTUS [Suspect]
     Indication: TYPE 2 DIABETES MELLITUS
     Dosage: DOSE REPORTED AS 30-34 U
     Route: 058
     Dates: start: 20090501
  3. CRESTOR [Concomitant]
  4. AMLODIPINE/VALSARTAN [Concomitant]
     Indication: HYPERTENSION
  5. AMARYL [Concomitant]
     Indication: TYPE 2 DIABETES MELLITUS

REACTIONS (5)
  - HAEMOGLOBIN DECREASED [None]
  - HAEMATOCRIT DECREASED [None]
  - OCCULT BLOOD POSITIVE [None]
  - PALLOR [None]
  - GASTRIC CANCER [None]
